FAERS Safety Report 7481286-6 (Version None)
Quarter: 2011Q2

REPORT INFORMATION
  Report Type: 
  Country: None (occurrence: None)
  Receive Date: 20110506
  Receipt Date: 20110426
  Transmission Date: 20111010
  Serious: Yes (Hospitalization)
  Sender: FDA-Public Use
  Company Number: UTC-006685

PATIENT
  Age: 15 Year
  Sex: Male
  Weight: 47.7 kg

DRUGS (5)
  1. REMODULIN [Suspect]
     Indication: PULMONARY HYPERTENSION
     Dosage: (0.05 UG/KG)
     Dates: start: 20110409
  2. LEVOTHYROXINE SODIUM [Concomitant]
  3. CHOLECALCIFEROL (CHOLECALCIFEROL) [Concomitant]
  4. INSULIN 70/30 (HUMAN MIXTARD /00806401/) [Concomitant]
  5. SILDENAFIL (SILFENADIL) [Concomitant]

REACTIONS (3)
  - BLOOD CREATININE INCREASED [None]
  - PULMONARY HYPERTENSION [None]
  - CONDITION AGGRAVATED [None]
